FAERS Safety Report 10334639 (Version 4)
Quarter: 2014Q3

REPORT INFORMATION
  Report Type: Spontaneous
  Country: US (occurrence: US)
  Receive Date: 20140723
  Receipt Date: 20140905
  Transmission Date: 20150326
  Serious: Yes (Other)
  Sender: FDA-Public Use
  Company Number: US-PFIZER INC-2014204747

PATIENT
  Age: 59 Year
  Sex: Female
  Weight: 124 kg

DRUGS (25)
  1. NEXIUM [Concomitant]
     Active Substance: ESOMEPRAZOLE MAGNESIUM
     Dosage: 400 MG, DAILY
     Route: 048
  2. FERROUS SULFATE [Concomitant]
     Active Substance: FERROUS SULFATE\FERROUS SULFATE, DRIED
     Dosage: 325 MG, 2X/DAY
     Route: 048
  3. LIDODERM [Concomitant]
     Active Substance: LIDOCAINE
     Dosage: 5% PATCH, APPLY TO THE TENDER AREA OF THE HIP IN AM, REMOVE AFTER 12 HOURS
     Dates: start: 20130520
  4. PRO AIR HFA [Concomitant]
     Dosage: 108 MCH/ACT, 1-2 PUFFS Q 2-3 HOURS PRN
     Dates: start: 20140214
  5. CHANTIX [Suspect]
     Active Substance: VARENICLINE TARTRATE
     Dosage: 1 MG, 2X/DAY
     Route: 048
     Dates: start: 20140604, end: 20140719
  6. SIMVASTATIN. [Concomitant]
     Active Substance: SIMVASTATIN
     Dosage: 40 MG, DAILY (QHS)
     Route: 048
     Dates: start: 20140519
  7. DOCQLACE [Concomitant]
     Active Substance: DOCUSATE SODIUM
     Dosage: 1 DF, 2X/DAY
     Route: 048
  8. CARISOPRODOL. [Concomitant]
     Active Substance: CARISOPRODOL
     Dosage: 350 MG, (1 TABLET IN THE MORNING AND 1-2 TABLET DAILY AS NEEDED)
     Route: 048
     Dates: start: 20121218
  9. CLONAZEPAM. [Concomitant]
     Active Substance: CLONAZEPAM
     Dosage: 1 MG, 3X/DAY (USE AS DIRECTED)
     Dates: start: 20130220
  10. LEVOTHYROXINE [Concomitant]
     Active Substance: LEVOTHYROXINE
     Dosage: 0.05 MG, 1X/DAY
     Route: 048
  11. COLACE [Concomitant]
     Active Substance: DOCUSATE SODIUM
     Dosage: 100 MG, 2X/DAY PRN
     Route: 048
     Dates: start: 20130617
  12. VALACYCLOVIR HCL [Concomitant]
     Active Substance: VALACYCLOVIR HYDROCHLORIDE
     Dosage: 500 MG, DAILY
     Route: 048
     Dates: start: 20131022
  13. RESTORIL [Suspect]
     Active Substance: TEMAZEPAM
     Indication: INSOMNIA
     Dosage: 30 MG, (15 MG 2 CAPSULE NIGHTLY)
     Route: 048
     Dates: start: 20140714
  14. LYRICA [Concomitant]
     Active Substance: PREGABALIN
     Dosage: 225 MG, 2X/DAY
     Route: 048
     Dates: start: 20140218
  15. VITAMIN D3 [Concomitant]
     Active Substance: CHOLECALCIFEROL
     Dosage: 5000 IU, WEEKLY
     Route: 048
     Dates: start: 20130220
  16. KLOR-CON/EF [Concomitant]
     Active Substance: POTASSIUM BICARBONATE
     Dosage: 25 MEQ, 1X/DAY
     Route: 048
     Dates: start: 20140603
  17. CHANTIX [Suspect]
     Active Substance: VARENICLINE TARTRATE
     Indication: SMOKING CESSATION THERAPY
     Dosage: UNK
     Route: 048
     Dates: start: 2012
  18. ENBREL [Concomitant]
     Active Substance: ETANERCEPT
     Dosage: 3.92 ML, WEEKLY
     Dates: start: 20121003
  19. HYDROCODONE [Concomitant]
     Active Substance: HYDROCODONE
     Dosage: UNK, 4X/DAY
  20. NEXIUM [Concomitant]
     Active Substance: ESOMEPRAZOLE MAGNESIUM
     Dosage: 40 MG, DAILY (40 MG, 1 CAP PO QHS)
     Route: 048
  21. OXAPROZIN. [Concomitant]
     Active Substance: OXAPROZIN
     Indication: ARTHRALGIA
     Dosage: 600 MG, 2X/DAY AS NEEDED, TAKE WITH FOOD
     Dates: start: 20130603
  22. VENLAFAXINE [Concomitant]
     Active Substance: VENLAFAXINE HYDROCHLORIDE
     Dosage: 225 MG (75MG 3 TABLETS), 1X/DAY
     Route: 048
  23. CYMBALTA [Concomitant]
     Active Substance: DULOXETINE HYDROCHLORIDE
     Dosage: 30 MG, DAILY (HS)
     Route: 048
  24. ACYCLOVIR. [Concomitant]
     Active Substance: ACYCLOVIR
     Dosage: 500 MG, DAILY
  25. HYDROCODONE BIT/APAP [Concomitant]
     Active Substance: ACETAMINOPHEN\HYDROCODONE BITARTRATE
     Dosage: 10 MG HYDROCODONE BITARTRATE/325 MG PARACETAMOL, 2 DF IN THE MORNING, THEN 1 DF AT NOON, THEN 1 DF
     Route: 048
     Dates: start: 20130509

REACTIONS (4)
  - Arthralgia [Unknown]
  - Rheumatoid arthritis [Not Recovered/Not Resolved]
  - Joint swelling [Unknown]
  - Pain [Not Recovered/Not Resolved]

NARRATIVE: CASE EVENT DATE: 201407
